FAERS Safety Report 17959115 (Version 4)
Quarter: 2020Q3

REPORT INFORMATION
  Report Type: Spontaneous
  Country: US (occurrence: US)
  Receive Date: 20200629
  Receipt Date: 20200827
  Transmission Date: 20201103
  Serious: Yes (Hospitalization, Other)
  Sender: FDA-Public Use
  Company Number: US-GILEAD-2020-0474419

PATIENT
  Age: 28 Year
  Sex: Male
  Weight: 101.09 kg

DRUGS (31)
  1. REMDESIVIR. [Suspect]
     Active Substance: REMDESIVIR
     Indication: COVID-19
     Dosage: 200 MG, ONCE
     Route: 042
     Dates: start: 20200602, end: 20200602
  2. POTASSIUM CHLORIDE. [Concomitant]
     Active Substance: POTASSIUM CHLORIDE
     Dosage: 40 UNK
     Route: 048
     Dates: start: 20200605, end: 20200606
  3. FUROSEMIDE. [Concomitant]
     Active Substance: FUROSEMIDE
     Dosage: 40 MG
     Route: 042
     Dates: start: 20200603, end: 20200604
  4. POTASSIUM CHLORIDE. [Concomitant]
     Active Substance: POTASSIUM CHLORIDE
     Dosage: 20 UNK
     Route: 048
     Dates: start: 20200605, end: 20200605
  5. TOCILIZUMAB. [Concomitant]
     Active Substance: TOCILIZUMAB
     Indication: COVID-19
     Dosage: 400 MG
     Route: 042
     Dates: start: 20200603, end: 20200603
  6. ALBUTEROL [SALBUTAMOL] [Concomitant]
     Active Substance: ALBUTEROL
     Indication: WHEEZING
     Dosage: 180 MCG
     Route: 055
     Dates: start: 20200603, end: 20200603
  7. ONDASETRON [ONDANSETRON] [Concomitant]
     Indication: NAUSEA
     Dosage: UNK
     Route: 042
     Dates: start: 20200601, end: 20200603
  8. PLASMA [Concomitant]
     Active Substance: HUMAN PLASMA
     Indication: COVID-19
     Dosage: 291 ML
     Dates: start: 20200604, end: 20200604
  9. CAPTOPRIL. [Concomitant]
     Active Substance: CAPTOPRIL
     Indication: HYPERTENSION
     Dosage: 6.25 MG
     Route: 048
     Dates: start: 20200603, end: 20200604
  10. CEFTRIAXONE. [Concomitant]
     Active Substance: CEFTRIAXONE
     Dosage: 1 G
     Route: 042
     Dates: start: 20200601, end: 20200603
  11. ENOXAPARIN [Concomitant]
     Active Substance: ENOXAPARIN
     Indication: THROMBOSIS PROPHYLAXIS
     Dosage: 40 MG
     Route: 058
     Dates: start: 20200602, end: 20200609
  12. FUROSEMIDE. [Concomitant]
     Active Substance: FUROSEMIDE
     Dosage: 20 UNK
     Route: 042
     Dates: start: 20200604, end: 20200604
  13. SODIUM CHLORIDE. [Concomitant]
     Active Substance: SODIUM CHLORIDE
     Dosage: 3 ML
     Route: 042
     Dates: start: 20200601, end: 20200609
  14. REMDESIVIR. [Suspect]
     Active Substance: REMDESIVIR
     Dosage: 100 MG, QD
     Route: 042
     Dates: start: 20200603, end: 20200606
  15. BUDESONIDE. [Concomitant]
     Active Substance: BUDESONIDE
     Indication: DYSPNOEA
  16. CAPTOPRIL. [Concomitant]
     Active Substance: CAPTOPRIL
     Dosage: 12.5 UNK
     Route: 048
     Dates: start: 20200604, end: 20200609
  17. MELATONIN [Concomitant]
     Active Substance: MELATONIN
     Dosage: 6 MG
     Route: 048
     Dates: start: 20200601, end: 20200602
  18. ONDASETRON [ONDANSETRON] [Concomitant]
     Indication: VOMITING
  19. SIMETHICONE (DIMETHICONE) [Concomitant]
     Active Substance: DIMETHICONE
     Indication: DYSPEPSIA
     Dosage: 15 ML
     Route: 048
     Dates: start: 20200602, end: 20200602
  20. ALBUTEROL [SALBUTAMOL] [Concomitant]
     Active Substance: ALBUTEROL
     Indication: DYSPNOEA
     Dosage: 2.5 MG
     Dates: start: 20200604, end: 20200609
  21. FUROSEMIDE. [Concomitant]
     Active Substance: FUROSEMIDE
     Dosage: 40 UNK
     Route: 042
     Dates: start: 20200605, end: 20200609
  22. CARVEDILOL. [Concomitant]
     Active Substance: CARVEDILOL
     Indication: HYPERTENSION
     Dosage: 3.125 MG
     Route: 048
     Dates: start: 20200605, end: 20200609
  23. ACETAMINOFEN [Concomitant]
     Active Substance: ACETAMINOPHEN
     Dosage: 650 UNK
     Route: 048
     Dates: start: 20200601, end: 20200603
  24. AZITHROMYCIN ANHYDROUS. [Concomitant]
     Active Substance: AZITHROMYCIN ANHYDROUS
     Dosage: 500 MG
     Route: 042
     Dates: start: 20200601, end: 20200603
  25. BUDESONIDE. [Concomitant]
     Active Substance: BUDESONIDE
     Indication: WHEEZING
     Dosage: 0.25 MG
     Dates: start: 20200603, end: 20200609
  26. POTASSIUM CHLORIDE. [Concomitant]
     Active Substance: POTASSIUM CHLORIDE
     Indication: HYPOKALAEMIA
     Dosage: 40 MEQ
     Route: 048
     Dates: start: 20200604, end: 20200604
  27. ACETAMINOFEN [Concomitant]
     Active Substance: ACETAMINOPHEN
     Indication: ANALGESIC THERAPY
     Dosage: 975 MG
     Route: 048
     Dates: start: 20200601, end: 20200601
  28. ACETAMINOFEN [Concomitant]
     Active Substance: ACETAMINOPHEN
     Dosage: 1000 UNK
     Route: 042
     Dates: start: 20200603, end: 20200604
  29. FENTANYL. [Concomitant]
     Active Substance: FENTANYL
     Dosage: UNK
     Route: 042
     Dates: start: 20200602, end: 20200604
  30. MORPHINE [Concomitant]
     Active Substance: MORPHINE
     Dosage: 2 MG
     Route: 042
     Dates: start: 20200603, end: 20200603
  31. PNEUMOCOCCAL VACCINE POLYVALENT NOS [Concomitant]
     Active Substance: PNEUMOCOCCAL VACCINE POLYVALENT
     Dosage: 0.5 ML
     Route: 030
     Dates: start: 20200607, end: 20200607

REACTIONS (4)
  - Transaminases increased [Not Recovered/Not Resolved]
  - Diarrhoea [Recovered/Resolved]
  - Acute kidney injury [Recovered/Resolved]
  - Leukocytosis [Recovered/Resolved]

NARRATIVE: CASE EVENT DATE: 20200601
